FAERS Safety Report 12690842 (Version 1)
Quarter: 2016Q3

REPORT INFORMATION
  Report Type: Spontaneous
  Country: US (occurrence: US)
  Receive Date: 20160826
  Receipt Date: 20160826
  Transmission Date: 20161109
  Serious: No
  Sender: FDA-Public Use
  Company Number: US-TARO-2016TAR00548

PATIENT
  Age: 48 Year
  Sex: Male
  Weight: 98.87 kg

DRUGS (5)
  1. MEXILETINE [Concomitant]
     Active Substance: MEXILETINE
     Dosage: 150 MG, 2X/DAY
  2. NOVOLIN REGULAR [Concomitant]
     Dosage: 30 U, AS DIRECTED
  3. NOVOLIN NPH [Concomitant]
     Active Substance: INSULIN HUMAN
     Dosage: 22.5 U, 2X/DAY
  4. KEVEYIS [Suspect]
     Active Substance: DICHLORPHENAMIDE
     Indication: MUSCULAR DYSTROPHY
     Dosage: 50 MG, 2X/DAY
     Route: 048
     Dates: start: 20160516, end: 20160605
  5. CLONAZEPAM. [Concomitant]
     Active Substance: CLONAZEPAM
     Dosage: 1 MG, 2X/DAY

REACTIONS (14)
  - Lethargy [Recovered/Resolved]
  - Therapeutic response unexpected [Not Recovered/Not Resolved]
  - Hiccups [Recovered/Resolved]
  - Fatigue [Recovered/Resolved]
  - Dry throat [Not Recovered/Not Resolved]
  - Decreased appetite [Recovered/Resolved]
  - Dysgeusia [Recovered/Resolved]
  - Abdominal pain lower [Recovered/Resolved]
  - Arthralgia [Recovered/Resolved]
  - Off label use [Recovered/Resolved]
  - Memory impairment [Recovering/Resolving]
  - Thirst [Not Recovered/Not Resolved]
  - Cough [Recovered/Resolved]
  - Dry mouth [Not Recovered/Not Resolved]

NARRATIVE: CASE EVENT DATE: 20160516
